FAERS Safety Report 9247514 (Version 2)
Quarter: 2013Q2

REPORT INFORMATION
  Report Type: Spontaneous
  Country: CA (occurrence: CA)
  Receive Date: 20130423
  Receipt Date: 20130517
  Transmission Date: 20140414
  Serious: Yes (Hospitalization)
  Sender: FDA-Public Use
  Company Number: CA-ASTELLAS-2013US004198

PATIENT
  Age: 58 Year
  Sex: Male

DRUGS (1)
  1. PROGRAF [Suspect]
     Indication: LUPUS NEPHRITIS
     Dosage: 1.5 MG, UID/QD
     Route: 048
     Dates: end: 20121228

REACTIONS (2)
  - Off label use [Unknown]
  - Lupus nephritis [Unknown]
